FAERS Safety Report 6568449-9 (Version None)
Quarter: 2010Q1

REPORT INFORMATION
  Report Type: 
  Country: None (occurrence: None)
  Receive Date: 20100203
  Receipt Date: 20100128
  Transmission Date: 20100710
  Serious: Yes (Death)
  Sender: FDA-Public Use
  Company Number: A0841871A

PATIENT
  Age: 68 Year
  Sex: Female

DRUGS (2)
  1. HYCAMTIN [Suspect]
     Indication: VULVAL CANCER METASTATIC
     Route: 042
     Dates: start: 20091001
  2. CISPLATIN [Concomitant]

REACTIONS (1)
  - DEATH [None]
